FAERS Safety Report 8775938 (Version 1)
Quarter: 2012Q4

REPORT INFORMATION
  Report Type: 
  Country: CA (occurrence: CA)
  Receive Date: 20120910
  Receipt Date: 20120910
  Transmission Date: 20130627
  Serious: Yes (Other)
  Sender: FDA-Public Use
  Company Number: CA-MERCK-1209CAN003560

PATIENT

DRUGS (3)
  1. SAPHRIS [Suspect]
     Indication: BIPOLAR DISORDER
     Dosage: 5 mg, qd
     Route: 060
     Dates: start: 20120330, end: 20120330
  2. ZOPICLONE [Concomitant]
     Indication: SLEEP DISORDER THERAPY
     Dosage: 7.5 mg, hs
     Route: 048
  3. PRISTIQ [Concomitant]
     Indication: ANTIDEPRESSANT THERAPY
     Dosage: 50 mg, bid
     Route: 048

REACTIONS (5)
  - Swollen tongue [Recovered/Resolved]
  - Pharyngeal oedema [Recovered/Resolved]
  - Nasal oedema [Recovered/Resolved]
  - Panic attack [Recovered/Resolved]
  - Underdose [Recovered/Resolved]
